FAERS Safety Report 15627911 (Version 1)
Quarter: 2018Q4

REPORT INFORMATION
  Report Type: Spontaneous
  Country: US (occurrence: US)
  Receive Date: 20181116
  Receipt Date: 20181116
  Transmission Date: 20190205
  Serious: No
  Sender: FDA-Public Use
  Company Number: US-MYLANLABS-2018M1084578

PATIENT
  Sex: Male
  Weight: 115 kg

DRUGS (2)
  1. METHADONE [Concomitant]
     Active Substance: METHADONE HYDROCHLORIDE
     Indication: PRODUCT USED FOR UNKNOWN INDICATION
     Dosage: UNK
  2. FENTANYL TRANSDERMAL SYSTEM [Suspect]
     Active Substance: FENTANYL
     Indication: NERVE INJURY
     Dosage: UNK
     Route: 062

REACTIONS (3)
  - Peripheral swelling [Unknown]
  - Product adhesion issue [Not Recovered/Not Resolved]
  - Rash [Unknown]
